FAERS Safety Report 4638779-6 (Version None)
Quarter: 2005Q2

REPORT INFORMATION
  Report Type: 
  Country: None (occurrence: None)
  Receive Date: 20050419
  Receipt Date: 20041221
  Transmission Date: 20051028
  Serious: Yes (Death, Hospitalization)
  Sender: FDA-Public Use
  Company Number: JP-NOVOPROD-241243

PATIENT
  Age: 13 Year
  Sex: Male

DRUGS (1)
  1. NORDITROPIN [Suspect]
     Indication: GROWTH HORMONE DEFICIENCY
     Dosage: 1 MG, UNK
     Route: 058
     Dates: start: 20030926, end: 20040401

REACTIONS (2)
  - ARRHYTHMIA [None]
  - CARDIAC FAILURE [None]
